FAERS Safety Report 5890693-4 (Version None)
Quarter: 2008Q3

REPORT INFORMATION
  Report Type: 
  Country: None (occurrence: None)
  Receive Date: 20080922
  Receipt Date: 20080915
  Transmission Date: 20090109
  Serious: Yes (Death, Hospitalization, Other)
  Sender: FDA-Public Use
  Company Number: PHHO2008CH09698

PATIENT
  Sex: Male
  Weight: 77 kg

DRUGS (10)
  1. ZOLEDRONIC ACID [Suspect]
     Dosage: UNK
     Route: 042
     Dates: start: 20050509, end: 20050711
  2. SUNITINIB MALATE [Suspect]
     Indication: RENAL CELL CARCINOMA
     Dosage: 12.5 MG, BID
     Route: 048
     Dates: start: 20050916, end: 20060910
  3. MAGNESIUM SULFATE [Concomitant]
     Dosage: UNK
     Route: 048
     Dates: start: 20060201
  4. ATENOLOL [Concomitant]
     Dosage: UNK
     Dates: start: 20060130
  5. MORPHINE SULFATE [Concomitant]
     Dosage: UNK
     Route: 048
     Dates: start: 20050930
  6. FOLVITE [Concomitant]
     Dosage: UNK
     Route: 048
     Dates: start: 20060904
  7. DAFALGAN [Concomitant]
     Dosage: UNK
     Route: 048
     Dates: start: 20040211
  8. OXAZEPAM [Concomitant]
     Dosage: UNK
     Route: 048
     Dates: start: 20040106
  9. MORPHINE SULFATE INJ [Concomitant]
     Dosage: UNK
     Route: 048
     Dates: start: 20041220
  10. LAXOBERON [Concomitant]
     Dosage: UNK
     Route: 048
     Dates: start: 20050901

REACTIONS (5)
  - DISEASE PROGRESSION [None]
  - JAW OPERATION [None]
  - MUCOSAL INFLAMMATION [None]
  - OSTEONECROSIS [None]
  - RENAL CELL CARCINOMA [None]
